FAERS Safety Report 21699750 (Version 1)
Quarter: 2022Q4

REPORT INFORMATION
  Report Type: Spontaneous
  Country: US (occurrence: US)
  Receive Date: 20221208
  Receipt Date: 20221208
  Transmission Date: 20230112
  Serious: No
  Sender: FDA-Public Use
  Company Number: US-PFIZER INC-202201356510

PATIENT
  Age: 46 Year
  Sex: Female

DRUGS (2)
  1. PAXLOVID [Suspect]
     Active Substance: NIRMATRELVIR\RITONAVIR
     Indication: COVID-19 treatment
     Dosage: UNK
     Dates: start: 20221117, end: 20221122
  2. VENLAFAXINE HYDROCHLORIDE [Concomitant]
     Active Substance: VENLAFAXINE HYDROCHLORIDE
     Dosage: UNK
     Dates: start: 20201201

REACTIONS (3)
  - Headache [Not Recovered/Not Resolved]
  - Pain [Not Recovered/Not Resolved]
  - Fatigue [Not Recovered/Not Resolved]

NARRATIVE: CASE EVENT DATE: 20221125
